FAERS Safety Report 9386142 (Version 1)
Quarter: 2013Q3

REPORT INFORMATION
  Report Type: Spontaneous
  Country: None (occurrence: US)
  Receive Date: 20130707
  Receipt Date: 20130707
  Transmission Date: 20140515
  Serious: No
  Sender: FDA-Public Use
  Company Number: US-ALLERGAN-1305839US

PATIENT
  Age: 78 Year
  Sex: Male

DRUGS (1)
  1. LUMIGAN? 0.01% [Suspect]
     Indication: INTRAOCULAR PRESSURE INCREASED
     Dosage: 1 GTT, QHS
     Route: 047
     Dates: start: 20130417

REACTIONS (1)
  - Eye pruritus [Unknown]
